FAERS Safety Report 22886569 (Version 2)
Quarter: 2023Q4

REPORT INFORMATION
  Report Type: Report from Study
  Country: US (occurrence: None)
  Receive Date: 20230831
  Receipt Date: 20231103
  Transmission Date: 20240110
  Serious: Yes (Other)
  Sender: FDA-Public Use
  Company Number: US-ROCHE-3412123

PATIENT
  Age: 68 Year
  Sex: Male
  Weight: 87 kg

DRUGS (26)
  1. RANIBIZUMAB [Suspect]
     Active Substance: RANIBIZUMAB
     Indication: Diabetic retinal oedema
     Dosage: DRUG DOSE FIRST ADMINISTERED IS 10 MG/ML, FREQUENCY WAS EVERY 24 WEEKS?DOSE LAST STUDY DRUG ADMIN PR
     Route: 050
     Dates: start: 20200217
  2. RANIBIZUMAB [Suspect]
     Active Substance: RANIBIZUMAB
  3. RANIBIZUMAB [Suspect]
     Active Substance: RANIBIZUMAB
  4. RANIBIZUMAB [Suspect]
     Active Substance: RANIBIZUMAB
  5. RANIBIZUMAB [Suspect]
     Active Substance: RANIBIZUMAB
  6. RANIBIZUMAB [Concomitant]
     Active Substance: RANIBIZUMAB
     Dosage: DOSE OF STUDY DRUG:6MG/ML?START DATE OF MOST RECENT DOSE OF STUDY DRUG PRIOR TO AE/SAE20-JUL-2023
     Route: 050
     Dates: start: 20200217
  7. AMLODIPINE BESYLATE [Concomitant]
     Active Substance: AMLODIPINE BESYLATE
     Indication: Hypertension
     Dosage: 10MG/ML
     Route: 048
     Dates: start: 2018
  8. METFORMIN [Concomitant]
     Active Substance: METFORMIN HYDROCHLORIDE
     Indication: Diabetes mellitus
     Dosage: 1000MG/ML
     Route: 048
     Dates: start: 1990
  9. HYDROCHLOROTHIAZIDE [Concomitant]
     Active Substance: HYDROCHLOROTHIAZIDE
     Indication: Hypertension
     Dosage: 50MG/ML
     Route: 048
     Dates: start: 2019
  10. HUMALOG [Concomitant]
     Active Substance: INSULIN LISPRO
     Indication: Diabetes mellitus
     Dosage: 15U
     Route: 058
  11. TRULICITY [Concomitant]
     Active Substance: DULAGLUTIDE
     Indication: Diabetes mellitus
     Dosage: 1.5MG/ML
     Route: 048
     Dates: start: 2016
  12. OMEPRAZOLE [Concomitant]
     Active Substance: OMEPRAZOLE
     Indication: Gastrooesophageal reflux disease
     Dosage: 40 MG/ML
     Route: 048
     Dates: start: 2016
  13. TELMISARTAN [Concomitant]
     Active Substance: TELMISARTAN
     Indication: Hypertension
     Dosage: 80 MG/ML
     Route: 048
  14. TAMSULOSIN [Concomitant]
     Active Substance: TAMSULOSIN
     Indication: Urinary retention
     Dosage: 0.4 MG/ML
     Route: 048
     Dates: start: 2016
  15. EZETIMIBE [Concomitant]
     Active Substance: EZETIMIBE
     Indication: Hyperlipidaemia
     Dosage: 10MG/ML
     Route: 048
     Dates: start: 20200318
  16. SODIUM BICARBONATE [Concomitant]
     Active Substance: SODIUM BICARBONATE
     Indication: Chronic kidney disease
     Route: 048
     Dates: start: 20200402
  17. ASPIRIN [Concomitant]
     Active Substance: ASPIRIN
     Dosage: 81MG/ML
     Route: 048
     Dates: start: 20200710
  18. AMITRIPTYLINE [Concomitant]
     Active Substance: AMITRIPTYLINE
     Indication: Neuralgia
     Dosage: 50MG/ML
     Route: 048
     Dates: start: 20201001
  19. FERROUS SULFATE [Concomitant]
     Active Substance: FERROUS SULFATE
     Dosage: 325MG/ML
     Route: 048
     Dates: start: 20210414
  20. SEVELAMER CARBONATE [Concomitant]
     Active Substance: SEVELAMER CARBONATE
     Dosage: 800MG/ML
     Route: 048
     Dates: start: 202102
  21. POTASSIUM [Concomitant]
     Active Substance: POTASSIUM
  22. LASIX [Concomitant]
     Active Substance: FUROSEMIDE
     Dosage: 80 MG/ML
     Route: 048
     Dates: start: 20220203
  23. FAMOTIDINE [Concomitant]
     Active Substance: FAMOTIDINE
     Dosage: 40MG/ML
     Route: 048
     Dates: start: 20220518
  24. CIPROFLOXACIN [Concomitant]
     Active Substance: CIPROFLOXACIN
     Route: 047
     Dates: start: 20230822, end: 20230825
  25. ATORVASTATIN [Concomitant]
     Active Substance: ATORVASTATIN
     Dosage: 40MG/ML
     Route: 048
     Dates: start: 20230811
  26. BRILINTA [Concomitant]
     Active Substance: TICAGRELOR
     Dosage: 90MG/ML
     Route: 048
     Dates: start: 20230811

REACTIONS (2)
  - Device issue [Unknown]
  - No adverse event [Unknown]

NARRATIVE: CASE EVENT DATE: 20230823
